FAERS Safety Report 8387662-1 (Version None)
Quarter: 2012Q2

REPORT INFORMATION
  Report Type: 
  Country: None (occurrence: None)
  Receive Date: 20120525
  Receipt Date: 20120521
  Transmission Date: 20120825
  Serious: No
  Sender: FDA-Public Use
  Company Number: US-PFIZER INC-2012123225

PATIENT
  Sex: Female

DRUGS (3)
  1. CELEBREX [Suspect]
     Dosage: 200 MG, 1X/DAY
     Route: 048
  2. LIPITOR [Concomitant]
     Dosage: UNK
  3. CELEBREX [Suspect]
     Indication: ARTHRALGIA
     Dosage: 100 MG, 1X/DAY
     Route: 048

REACTIONS (3)
  - OSTEOARTHRITIS [None]
  - GAIT DISTURBANCE [None]
  - CHONDROPATHY [None]
